FAERS Safety Report 6537094-3 (Version None)
Quarter: 2010Q1

REPORT INFORMATION
  Report Type: 
  Country: None (occurrence: None)
  Receive Date: 20100110
  Receipt Date: 20091209
  Transmission Date: 20100710
  Serious: Yes (Hospitalization)
  Sender: FDA-Public Use
  Company Number: 2009-00080

PATIENT
  Age: 55 Year
  Sex: Female
  Weight: 118.8424 kg

DRUGS (7)
  1. LISINOPRIL [Suspect]
     Indication: HYPERTENSION
     Dosage: 10 MG ONCE DAILY, ORAL
     Route: 048
     Dates: start: 20090414, end: 20090723
  2. UNSPECIFIED DOUBLE-BLIND PRODUCT [Suspect]
     Indication: HYPERTENSION
     Dosage: , 1 D, ORAL
     Route: 048
     Dates: start: 20090513, end: 20090723
  3. PAXIL (30 MILLIGRAM) [Concomitant]
  4. ABILIFY (5 MILLIGRAM) [Concomitant]
  5. CARDIZEM (240 MILLIGRAM) [Concomitant]
  6. TRAZODONE [Concomitant]
  7. MULTI-VITAMIN [Concomitant]

REACTIONS (9)
  - ANXIETY [None]
  - ASTHENIA [None]
  - CRYING [None]
  - DEPRESSION [None]
  - HYPERTENSION [None]
  - SCRATCH [None]
  - STRESS [None]
  - SUICIDAL IDEATION [None]
  - WEIGHT INCREASED [None]
